FAERS Safety Report 7389292-7 (Version None)
Quarter: 2011Q2

REPORT INFORMATION
  Report Type: 
  Country: None (occurrence: None)
  Receive Date: 20110401
  Receipt Date: 20110329
  Transmission Date: 20111010
  Serious: Yes (Hospitalization)
  Sender: FDA-Public Use
  Company Number: A0773213A

PATIENT
  Age: 36 Year
  Sex: Male
  Weight: 111.4 kg

DRUGS (10)
  1. NIFEDIPINE [Concomitant]
  2. COZAAR [Concomitant]
  3. METFORMIN HCL [Concomitant]
  4. ALTACE [Concomitant]
  5. GLUCOTROL [Concomitant]
  6. PROTONIX [Concomitant]
  7. HYZAAR [Concomitant]
  8. AVANDIA [Suspect]
     Indication: DIABETES MELLITUS
     Dosage: 4MG PER DAY
     Route: 048
     Dates: start: 20030801, end: 20061101
  9. POTASSIUM [Concomitant]
  10. FUROSEMIDE [Concomitant]

REACTIONS (2)
  - LACUNAR INFARCTION [None]
  - CARDIAC FAILURE CONGESTIVE [None]
